FAERS Safety Report 9928131 (Version 1)
Quarter: 2014Q1

REPORT INFORMATION
  Report Type: Spontaneous
  Country: IT (occurrence: None)
  Receive Date: 20140224
  Receipt Date: 20140224
  Transmission Date: 20141002
  Serious: Yes (Other)
  Sender: FDA-Public Use
  Company Number: AUR-APL-2014-01827

PATIENT
  Age: 51 Year
  Sex: Male

DRUGS (7)
  1. MIRTAZAPINE [Suspect]
     Indication: JC VIRUS INFECTION
  2. MEFLOQUINE [Suspect]
     Indication: JC VIRUS INFECTION
  3. RITONAVIR (RITONAVIR) [Concomitant]
  4. RALTEGRAVIR (RALTEGRAVIR) [Concomitant]
  5. ENFUVIRTIDE (ENFUVIRITDE) [Concomitant]
  6. EMTRICITABINE /TENOVIR (EMTRICITABINE W/TENFOVIR) [Concomitant]
  7. METHYLPREDNISOLONE (METHYLPREDNISOLONE) [Concomitant]

REACTIONS (9)
  - Pulmonary oedema [None]
  - Gait disturbance [None]
  - Dysarthria [None]
  - Dysphagia [None]
  - Condition aggravated [None]
  - Aphasia [None]
  - Bedridden [None]
  - Drug ineffective [None]
  - JC virus infection [None]
